FAERS Safety Report 8023093-1 (Version None)
Quarter: 2012Q1

REPORT INFORMATION
  Report Type: 
  Country: None (occurrence: None)
  Receive Date: 20120104
  Receipt Date: 20120103
  Transmission Date: 20120608
  Serious: Yes (Other)
  Sender: FDA-Public Use
  Company Number: PHHO2011NL15175

PATIENT
  Sex: Male

DRUGS (8)
  1. MYFORTIC [Concomitant]
     Dosage: 1.5 MG, BID
  2. PROGRAF [Suspect]
     Indication: RENAL TRANSPLANT
     Dosage: 10 MG, QD
     Dates: start: 20110902
  3. CERTICAN [Suspect]
     Indication: RENAL TRANSPLANT
     Dosage: 1.5 MG, BID
     Dates: end: 20110902
  4. COTRIM [Concomitant]
     Dosage: 400 MG, UNK
  5. OMEPRAZOLE [Concomitant]
     Dosage: 20 MG, BID
  6. METOPROLOL SUCCINATE [Concomitant]
     Dosage: 70 MG, UNK
  7. PREDNISOLONE [Concomitant]
     Dosage: 10 MG, UNK
  8. VALCYTE [Concomitant]
     Dosage: 450 UKN, BID

REACTIONS (1)
  - PULMONARY EMBOLISM [None]
